FAERS Safety Report 9891848 (Version 1)
Quarter: 2014Q1

REPORT INFORMATION
  Report Type: Spontaneous
  Country: US (occurrence: None)
  Receive Date: 20140210
  Receipt Date: 20140210
  Transmission Date: 20141002
  Serious: Yes (Hospitalization)
  Sender: FDA-Public Use
  Company Number: AUR-APL-2014-01325

PATIENT
  Age: 50 Year
  Sex: Male

DRUGS (3)
  1. CYCLOBENZAPRINE (CYCLOBENZAPRINE) [Suspect]
     Indication: ANTIDEPRESSANT THERAPY
     Route: 048
  2. TRAZODONE (TRAZODONE) [Suspect]
     Indication: ANTIDEPRESSANT THERAPY
     Route: 048
  3. DOXEPIN (DOXEPIN) (DOXEPIN) [Suspect]
     Indication: ANTIDEPRESSANT THERAPY
     Route: 048

REACTIONS (7)
  - Convulsion [None]
  - Toxicity to various agents [None]
  - Acidosis [None]
  - Hypotension [None]
  - Electrocardiogram QRS complex prolonged [None]
  - Exposure via ingestion [None]
  - Depressed level of consciousness [None]
